FAERS Safety Report 17543756 (Version 1)
Quarter: 2020Q1

REPORT INFORMATION
  Report Type: Spontaneous
  Country: IT (occurrence: IT)
  Receive Date: 20200316
  Receipt Date: 20200316
  Transmission Date: 20200409
  Serious: Yes (Other)
  Sender: FDA-Public Use
  Company Number: IT-TEVA-2020-IT-1198840

PATIENT
  Age: 44 Year
  Sex: Female
  Weight: 77 kg

DRUGS (3)
  1. PRAZENE [Suspect]
     Active Substance: PRAZEPAM
     Dosage: 15 MG
     Dates: start: 20181119
  2. OLANZAPINA TEVA [Suspect]
     Active Substance: OLANZAPINE
     Dosage: 5 MG
     Dates: start: 20180623
  3. ANAFRANIL [Suspect]
     Active Substance: CLOMIPRAMINE HYDROCHLORIDE
     Dosage: 75 MG
     Dates: start: 20180601

REACTIONS (7)
  - Somnolence [Unknown]
  - Hypercholesterolaemia [Unknown]
  - Weight increased [Unknown]
  - Arrhythmia [Unknown]
  - Pseudogynaecomastia [Unknown]
  - Hyperprolactinaemia [Unknown]
  - Bradykinesia [Unknown]

NARRATIVE: CASE EVENT DATE: 20190326
